FAERS Safety Report 9839527 (Version 1)
Quarter: 2014Q1

REPORT INFORMATION
  Report Type: Spontaneous
  Country: US (occurrence: US)
  Receive Date: 20140124
  Receipt Date: 20140124
  Transmission Date: 20141002
  Serious: Yes (Other)
  Sender: FDA-Public Use
  Company Number: US-JNJCP-30000195173

PATIENT
  Sex: Female
  Weight: 77 kg

DRUGS (6)
  1. NEUTROGENA HEALTHY SKIN FACE LOTION WITH SPF 15 [Suspect]
     Indication: DRY SKIN PROPHYLAXIS
     Dosage: THREE SQUIRTS ONCE A DAY
     Route: 061
     Dates: start: 20140103, end: 20140105
  2. DIABETES MEDICATION [Concomitant]
     Indication: DIABETES MELLITUS
  3. UNSPECIFICED MEDICATIONS [Concomitant]
     Indication: PRODUCT USED FOR UNKNOWN INDICATION
  4. NEUTROGENA ALCOHOL-FREE TONER [Suspect]
     Indication: REMOVAL OF INERT MATTER FROM SKIN OR SUBCUTANEOUS TISSUE
     Dosage: ONE DIP, ON ROUND, FLAT, COTTON PAD ONCE A DAY
     Route: 061
     Dates: start: 20140103, end: 20140105
  5. NEUTROGENA MAKE-UP REMOVER CLEANSING TOWLETTES [Suspect]
     Indication: REMOVAL OF INERT MATTER FROM SKIN OR SUBCUTANEOUS TISSUE
     Dosage: TWO TOWELETTES, THRICE A DAY
     Route: 061
     Dates: start: 20140103, end: 20140105
  6. UNSPECIFICED [Concomitant]

REACTIONS (3)
  - Application site burn [Not Recovered/Not Resolved]
  - Application site pruritus [Not Recovered/Not Resolved]
  - Eye swelling [Not Recovered/Not Resolved]
